FAERS Safety Report 7651479-3 (Version None)
Quarter: 2011Q3

REPORT INFORMATION
  Report Type: 
  Country: None (occurrence: None)
  Receive Date: 20110802
  Receipt Date: 20110728
  Transmission Date: 20111222
  Serious: Yes (Death)
  Sender: FDA-Public Use
  Company Number: PHHY2011BR68573

PATIENT
  Sex: Female
  Weight: 78 kg

DRUGS (5)
  1. FORMOTEROL FUMARATE [Suspect]
     Indication: ASTHMA
     Dosage: 1 DF, BID
     Dates: start: 20070101
  2. INSULIN [Concomitant]
     Dosage: 30 UNITS IN THE MORNING AND 4 UNITS AT NIGHT
  3. LOSARTAN POTASSIUM [Concomitant]
     Dosage: 1 TABLET TWICE A DAY
     Route: 048
  4. OMEPRAZID [Concomitant]
     Dosage: 1 TABLET A DAY
     Route: 048
  5. LASIX [Concomitant]
     Dosage: 40 MG, QD
     Route: 048

REACTIONS (3)
  - HYPERTENSION [None]
  - CARDIO-RESPIRATORY ARREST [None]
  - DIABETES MELLITUS [None]
